FAERS Safety Report 13815492 (Version 1)
Quarter: 2017Q3

REPORT INFORMATION
  Report Type: Spontaneous
  Country: US (occurrence: US)
  Receive Date: 20170731
  Receipt Date: 20170731
  Transmission Date: 20171127
  Serious: Yes (Disabling)
  Sender: FDA-Public Use
  Company Number: None

PATIENT
  Age: 27 Year
  Sex: Male
  Weight: 62.1 kg

DRUGS (1)
  1. CIPROFLOXACIN. [Suspect]
     Active Substance: CIPROFLOXACIN
     Indication: URINARY TRACT INFECTION
     Dates: start: 20160923, end: 20160924

REACTIONS (5)
  - Dizziness [None]
  - Insomnia [None]
  - Muscle twitching [None]
  - Anxiety [None]
  - Tinnitus [None]

NARRATIVE: CASE EVENT DATE: 20160923
